FAERS Safety Report 16800995 (Version 1)
Quarter: 2019Q3

REPORT INFORMATION
  Report Type: Report from Study
  Country: US (occurrence: US)
  Receive Date: 20190912
  Receipt Date: 20190912
  Transmission Date: 20191005
  Serious: Yes (Death)
  Sender: FDA-Public Use
  Company Number: US-TAKEDA-2019TUS051898

PATIENT
  Sex: Female

DRUGS (3)
  1. BORTEZOMIB. [Suspect]
     Active Substance: BORTEZOMIB
     Indication: MONOCLONAL GAMMOPATHY
  2. BORTEZOMIB. [Suspect]
     Active Substance: BORTEZOMIB
     Indication: MALIGNANT LYMPHOID NEOPLASM
  3. BORTEZOMIB. [Suspect]
     Active Substance: BORTEZOMIB
     Indication: HAEMATOPOIETIC NEOPLASM
     Dosage: UNK
     Route: 058

REACTIONS (2)
  - Off label use [Unknown]
  - Transplantation complication [Fatal]
